FAERS Safety Report 15983514 (Version 1)
Quarter: 2019Q1

REPORT INFORMATION
  Report Type: Spontaneous
  Country: GB (occurrence: GB)
  Receive Date: 20190220
  Receipt Date: 20190220
  Transmission Date: 20190418
  Serious: Yes (Disabling, Other)
  Sender: FDA-Public Use
  Company Number: GB-AUROBINDO-AUR-APL-2019-008491

PATIENT

DRUGS (4)
  1. CLENIL MODULITE [Concomitant]
     Active Substance: BECLOMETHASONE DIPROPIONATE
     Indication: PRODUCT USED FOR UNKNOWN INDICATION
     Dosage: UNK
     Route: 065
  2. SALBUTAMOL [Concomitant]
     Active Substance: ALBUTEROL
     Indication: PRODUCT USED FOR UNKNOWN INDICATION
     Dosage: UNK
     Route: 065
  3. MONTELUKAST [Suspect]
     Active Substance: MONTELUKAST SODIUM
     Indication: WHEEZING
     Dosage: 4 MILLIGRAM
     Route: 048
     Dates: start: 20120216, end: 20161023
  4. SINGULAIR [Suspect]
     Active Substance: MONTELUKAST SODIUM
     Indication: WHEEZING
     Dosage: 4 MILLIGRAM
     Route: 048
     Dates: start: 20120216, end: 20161023

REACTIONS (7)
  - Abnormal behaviour [Recovered/Resolved]
  - Sleep terror [Recovered/Resolved with Sequelae]
  - Urinary incontinence [Recovered/Resolved]
  - Aggression [Recovering/Resolving]
  - Anxiety [Recovering/Resolving]
  - Depression [Recovered/Resolved]
  - Insomnia [Recovered/Resolved with Sequelae]

NARRATIVE: CASE EVENT DATE: 20120401
